FAERS Safety Report 22058180 (Version 4)
Quarter: 2023Q2

REPORT INFORMATION
  Report Type: Report from Study
  Country: US (occurrence: US)
  Receive Date: 20230303
  Receipt Date: 20230525
  Transmission Date: 20230721
  Serious: No
  Sender: FDA-Public Use
  Company Number: US-002147023-NVSC2023US043693

PATIENT
  Sex: Female

DRUGS (1)
  1. KESIMPTA [Suspect]
     Active Substance: OFATUMUMAB
     Indication: Product used for unknown indication
     Dosage: UNK
     Route: 065

REACTIONS (11)
  - Oxygen saturation decreased [Unknown]
  - Visual impairment [Unknown]
  - Fatigue [Unknown]
  - Pain in extremity [Unknown]
  - Illness [Unknown]
  - Back pain [Unknown]
  - Enuresis [Unknown]
  - Hypertension [Unknown]
  - Swelling [Unknown]
  - Weight increased [Unknown]
  - Secretion discharge [Unknown]
